FAERS Safety Report 9525042 (Version 1)
Quarter: 2013Q1

REPORT INFORMATION
  Report Type: Spontaneous
  Country: US (occurrence: None)
  Receive Date: 20130314
  Receipt Date: 20130314
  Transmission Date: 20140127
  Serious: No
  Sender: FDA-Public Use
  Company Number: 1212USA006222

PATIENT
  Age: 58 Year
  Sex: Male
  Weight: 85.3 kg

DRUGS (10)
  1. PEG-INTRON (PEGINTERFERON ALFA-2B) POWDER FOR INJECTION, 150MICROGRAM [Suspect]
     Dosage: 150 MCG/0.5ML, QW, SUBCUTANEOUS
     Route: 058
  2. VICTRELIS (BOCEPREVIR) CAPSULE, 200MG [Suspect]
     Dosage: 800 MG, TID, ORAL
     Route: 048
  3. RIBAPAK (RIBAVIRIN) [Suspect]
     Dosage: 1000 PER DAY
  4. PRILOSEC (OMEPRAZOLE) CAPSULE, 10 MG [Concomitant]
  5. ADVAIR (FLUTICASONE PROPIONATE, SALMETEROL XINAFOATE), 45/21? [Concomitant]
  6. VITAMINS (UNSPECIFIED) (VITAMINS (UNSPECIFIED)) TABLET [Concomitant]
  7. COMBIVENT (ALBUTEROL SULFATE, IPRATROPIUM BROMIDE) [Concomitant]
  8. ASCORBIC ACID (ASCORBIC ACID) CAPSULE, 500 MG [Concomitant]
  9. ASPIRIN (ASPIRIN) TABLET, 81 MG [Concomitant]
  10. VITAMIN B50 (VITAMIN B COMPLEX) TABLET [Concomitant]

REACTIONS (3)
  - Pain in jaw [None]
  - Glossodynia [None]
  - Headache [None]
